FAERS Safety Report 9188847 (Version 1)
Quarter: 2013Q1

REPORT INFORMATION
  Report Type: Report from Study
  Country: CA (occurrence: CA)
  Receive Date: 20130326
  Receipt Date: 20130326
  Transmission Date: 20140127
  Serious: Yes (Hospitalization)
  Sender: FDA-Public Use
  Company Number: CA-JNJFOC-20130310870

PATIENT
  Age: 46 Year
  Sex: Male
  Weight: 69 kg

DRUGS (6)
  1. REMICADE [Suspect]
     Indication: CROHN^S DISEASE
     Route: 042
     Dates: start: 20130117
  2. REMICADE [Suspect]
     Indication: CROHN^S DISEASE
     Route: 042
     Dates: start: 20111121
  3. AMOXICILLIN [Concomitant]
     Route: 065
  4. LOPERAMIDE [Concomitant]
     Route: 065
  5. SERAX [Concomitant]
     Route: 065
  6. CALCIUM AND VITAMIN D [Concomitant]
     Route: 065

REACTIONS (4)
  - Pyrexia [Recovered/Resolved]
  - Pain [Recovered/Resolved]
  - Muscle spasms [Recovered/Resolved]
  - Chest X-ray abnormal [Unknown]
